FAERS Safety Report 4325397-2 (Version None)
Quarter: 2004Q1

REPORT INFORMATION
  Report Type: 
  Country: None (occurrence: None)
  Receive Date: 20040324
  Receipt Date: 20040315
  Transmission Date: 20041129
  Serious: Yes (Life-Threatening, Hospitalization, Other)
  Sender: FDA-Public Use
  Company Number: 200410184BCA

PATIENT
  Age: 52 Year
  Sex: Male
  Weight: 95 kg

DRUGS (6)
  1. AVELOX [Suspect]
     Indication: TRACHEOBRONCHITIS
     Dosage: 400 MG , TOTAL DAILY, ORAL
     Route: 048
     Dates: start: 20031023
  2. LANOXIN [Concomitant]
  3. LASIX [Concomitant]
  4. COREG [Concomitant]
  5. VASOTEC [Concomitant]
  6. PRAVACHOL [Concomitant]

REACTIONS (3)
  - ELECTROCARDIOGRAM QT CORRECTED INTERVAL PROLONGED [None]
  - PULSE ABSENT [None]
  - VENTRICULAR FIBRILLATION [None]
